FAERS Safety Report 13956547 (Version 1)
Quarter: 2020Q3

REPORT INFORMATION
  Report Type: Report from Study
  Country: BR (occurrence: BR)
  Receive Date: 20170912
  Receipt Date: 20170912
  Transmission Date: 20201104
  Serious: Yes (Other)
  Sender: FDA-Public Use
  Company Number: PHHY2016BR013674

PATIENT
  Age: 63 Year
  Sex: Female
  Weight: 53 kg

DRUGS (11)
  1. VITAMIN D2 [Concomitant]
     Active Substance: ERGOCALCIFEROL
     Indication: PRODUCT USED FOR UNKNOWN INDICATION
     Route: 065
  2. GILENYA [Suspect]
     Active Substance: FINGOLIMOD HYDROCHLORIDE
     Dosage: 0.5 MG, QD
     Route: 048
  3. LEVOTHYROXINE. [Concomitant]
     Active Substance: LEVOTHYROXINE
     Indication: HYPOTHYROIDISM
     Dosage: 1 DF, QD
     Route: 048
     Dates: start: 2006
  4. PROLOPA HBS [Concomitant]
     Active Substance: BENSERAZIDE\LEVODOPA
     Indication: PRODUCT USED FOR UNKNOWN INDICATION
     Route: 065
  5. PANTOPRAZOLE [Concomitant]
     Active Substance: PANTOPRAZOLE
     Indication: GASTRITIS
     Dosage: 1 DF, QD
     Route: 048
  6. WELLBUTRIN [Concomitant]
     Active Substance: BUPROPION HYDROCHLORIDE
     Indication: DEPRESSION
     Dosage: 1 DF, QD
     Route: 048
  7. FINGOLIMOD. [Suspect]
     Active Substance: FINGOLIMOD
     Indication: MULTIPLE SCLEROSIS
     Dosage: UNK
     Route: 065
  8. LEXAPRO [Concomitant]
     Active Substance: ESCITALOPRAM OXALATE
     Indication: ANXIETY
     Dosage: 1 DF, QD
     Route: 048
  9. GILENYA [Suspect]
     Active Substance: FINGOLIMOD HYDROCHLORIDE
     Indication: MULTIPLE SCLEROSIS
     Dosage: 0.5 MG, QD
     Route: 048
     Dates: start: 201511
  10. ATORVASTATIN [Concomitant]
     Active Substance: ATORVASTATIN
     Indication: BLOOD CHOLESTEROL INCREASED
     Dosage: 1 DF, QD
     Route: 048
  11. GILENYA [Suspect]
     Active Substance: FINGOLIMOD HYDROCHLORIDE
     Dosage: 0.5 MG, (GETTING THE MEDICATION EVERY 15 DAYS)
     Route: 048

REACTIONS (30)
  - Tremor [Not Recovered/Not Resolved]
  - Pigmentation disorder [Recovering/Resolving]
  - Hepatic enzyme abnormal [Recovered/Resolved]
  - Rhinorrhoea [Recovering/Resolving]
  - Gait disturbance [Recovered/Resolved]
  - Loss of consciousness [Unknown]
  - Micturition urgency [Unknown]
  - Learning disorder [Unknown]
  - Coordination abnormal [Not Recovered/Not Resolved]
  - Asthenia [Recovering/Resolving]
  - Weight decreased [Unknown]
  - Confusional state [Unknown]
  - Electroencephalogram abnormal [Unknown]
  - Arthralgia [Recovered/Resolved]
  - Dysphagia [Recovering/Resolving]
  - Parkinson^s disease [Recovering/Resolving]
  - Pain in extremity [Unknown]
  - Muscular weakness [Unknown]
  - Memory impairment [Not Recovered/Not Resolved]
  - Fatigue [Unknown]
  - Weight increased [Unknown]
  - Sciatica [Recovered/Resolved]
  - Concomitant disease aggravated [Not Recovered/Not Resolved]
  - Muscular weakness [Recovered/Resolved]
  - Dysstasia [Unknown]
  - Balance disorder [Not Recovered/Not Resolved]
  - Rhinitis [Recovered/Resolved]
  - Choking [Recovered/Resolved]
  - Paraesthesia [Recovered/Resolved]
  - Abdominal discomfort [Unknown]

NARRATIVE: CASE EVENT DATE: 201511
